FAERS Safety Report 4301068-3 (Version None)
Quarter: 2004Q1

REPORT INFORMATION
  Report Type: 
  Country: None (occurrence: None)
  Receive Date: 20040219
  Receipt Date: 20040211
  Transmission Date: 20041129
  Serious: Yes (Death)
  Sender: FDA-Public Use
  Company Number: 04P-163-0249903-00

PATIENT
  Age: 32 Year
  Sex: Female

DRUGS (3)
  1. ABBOKINASE [Suspect]
     Indication: THROMBOLYSIS
     Dosage: 250000 UNIT, INTRAVENOUS
     Route: 042
     Dates: start: 20040201
  2. ORAL CONTRACEPTIVE NOS [Concomitant]
  3. HEPARIN [Concomitant]

REACTIONS (3)
  - CONDITION AGGRAVATED [None]
  - PULMONARY EMBOLISM [None]
  - VENTRICULAR DYSFUNCTION [None]
